FAERS Safety Report 6970267-4 (Version None)
Quarter: 2010Q3

REPORT INFORMATION
  Report Type: 
  Country: None (occurrence: None)
  Receive Date: 20100908
  Receipt Date: 20100827
  Transmission Date: 20110219
  Serious: Yes (Other)
  Sender: FDA-Public Use
  Company Number: PHHY2010DE51523

PATIENT
  Sex: Male
  Weight: 78 kg

DRUGS (2)
  1. CYCLOSPORINE [Suspect]
     Indication: NEURODERMATITIS
     Dosage: 100 MG, BID
     Route: 048
     Dates: start: 20050506
  2. AH3 [Concomitant]
     Indication: DERMATOSIS
     Dosage: 25 MG/DAY
     Route: 048
     Dates: start: 20050506, end: 20080715

REACTIONS (2)
  - OSTEOPENIA [None]
  - OSTEOPOROSIS [None]
